FAERS Safety Report 4590549-3 (Version None)
Quarter: 2005Q1

REPORT INFORMATION
  Report Type: 
  Country: None (occurrence: None)
  Receive Date: 20050224
  Receipt Date: 20040825
  Transmission Date: 20050727
  Serious: Yes (Other)
  Sender: FDA-Public Use
  Company Number: PHBS2004JP11312

PATIENT
  Age: 25 Year
  Sex: Male

DRUGS (3)
  1. VOLTAREN [Suspect]
     Indication: PROSTATITIS
     Dosage: UNK, UNK
     Route: 048
     Dates: start: 20030313
  2. CIPROXAN [Suspect]
     Indication: PROSTATITIS
     Dosage: UNK, UNK
     Route: 048
     Dates: start: 20030313
  3. BLADDERON [Suspect]
     Indication: PROSTATITIS
     Dosage: UNK, UNK
     Route: 048
     Dates: start: 20030313

REACTIONS (7)
  - ANAPHYLACTIC REACTION [None]
  - DYSPNOEA [None]
  - FACE OEDEMA [None]
  - PALPITATIONS [None]
  - PRURITUS [None]
  - RHINORRHOEA [None]
  - URTICARIA [None]
